FAERS Safety Report 9082670 (Version 1)
Quarter: 2013Q1

REPORT INFORMATION
  Report Type: Report from Study
  Country: US (occurrence: US)
  Receive Date: 20130130
  Receipt Date: 20130130
  Transmission Date: 20140127
  Serious: No
  Sender: FDA-Public Use
  Company Number: US-ABBOTT-12P-163-0973542-00

PATIENT
  Age: 62 Year
  Sex: Female

DRUGS (7)
  1. HUMIRA [Suspect]
     Indication: PSORIASIS
     Dates: start: 20120802
  2. LEVOTHYROXINE [Concomitant]
     Indication: HYPOTHYROIDISM
  3. AMITRIPTYLINE [Concomitant]
     Indication: ANXIETY
  4. PANTOPRAZOLE [Concomitant]
     Indication: ILL-DEFINED DISORDER
  5. CRESTOR [Concomitant]
     Indication: BLOOD CHOLESTEROL INCREASED
     Dosage: 10MG DAILY
  6. EXCEDRIN MIGRAINE [Concomitant]
     Indication: MIGRAINE
     Dosage: 2 AS NEEDED
  7. HALOG [Concomitant]
     Indication: PSORIASIS
     Dosage: CREAM

REACTIONS (3)
  - Injury [Recovering/Resolving]
  - Localised infection [Recovering/Resolving]
  - Injection site pain [Recovering/Resolving]
